FAERS Safety Report 22149076 (Version 1)
Quarter: 2023Q1

REPORT INFORMATION
  Report Type: Spontaneous
  Country: None (occurrence: US)
  Receive Date: 20230328
  Receipt Date: 20230328
  Transmission Date: 20230417
  Serious: No
  Sender: FDA-Public Use
  Company Number: US-OrBion Pharmaceuticals Private Limited-2139633

PATIENT
  Sex: Male

DRUGS (1)
  1. IBANDRONATE SODIUM [Suspect]
     Active Substance: IBANDRONATE SODIUM
     Route: 065

REACTIONS (4)
  - Influenza like illness [Unknown]
  - Myalgia [Unknown]
  - Back pain [Unknown]
  - Malaise [Unknown]
